FAERS Safety Report 11387540 (Version 1)
Quarter: 2015Q3

REPORT INFORMATION
  Report Type: Spontaneous
  Country: US (occurrence: US)
  Receive Date: 20150817
  Receipt Date: 20150817
  Transmission Date: 20151125
  Serious: No
  Sender: FDA-Public Use
  Company Number: US-BAYER-2015-401800

PATIENT
  Age: 65 Year
  Sex: Female

DRUGS (1)
  1. GADAVIST [Suspect]
     Active Substance: GADOBUTROL
     Indication: NUCLEAR MAGNETIC RESONANCE IMAGING
     Dosage: 6.5 ML, ONCE
     Route: 042
     Dates: start: 20150813, end: 20150813

REACTIONS (2)
  - Cough [None]
  - Speech disorder [None]

NARRATIVE: CASE EVENT DATE: 20150813
